FAERS Safety Report 23146516 (Version 1)
Quarter: 2023Q4

REPORT INFORMATION
  Report Type: Spontaneous
  Country: CN (occurrence: CN)
  Receive Date: 20231105
  Receipt Date: 20231105
  Transmission Date: 20240109
  Serious: Yes (Hospitalization, Other)
  Sender: FDA-Public Use
  Company Number: CN-EPICPHARMA-CN-2023EPCLIT01703

PATIENT
  Age: 80 Year
  Sex: Female

DRUGS (6)
  1. CARBOPLATIN [Suspect]
     Active Substance: CARBOPLATIN
     Indication: Ovarian epithelial cancer
     Route: 033
     Dates: start: 20220107
  2. CARBOPLATIN [Suspect]
     Active Substance: CARBOPLATIN
     Route: 033
     Dates: start: 20220131
  3. PACLITAXEL [Suspect]
     Active Substance: PACLITAXEL
     Indication: Ovarian epithelial cancer
     Route: 042
     Dates: start: 20211215
  4. PACLITAXEL [Suspect]
     Active Substance: PACLITAXEL
     Route: 042
     Dates: start: 20220107
  5. PACLITAXEL [Suspect]
     Active Substance: PACLITAXEL
     Route: 042
     Dates: start: 20220131
  6. PACLITAXEL [Suspect]
     Active Substance: PACLITAXEL
     Route: 042
     Dates: start: 20220315

REACTIONS (2)
  - Idiopathic pulmonary fibrosis [Recovered/Resolved]
  - Myelosuppression [Recovered/Resolved]

NARRATIVE: CASE EVENT DATE: 20220207
